FAERS Safety Report 20816334 (Version 1)
Quarter: 2022Q2

REPORT INFORMATION
  Report Type: Spontaneous
  Country: JP (occurrence: JP)
  Receive Date: 20220511
  Receipt Date: 20220511
  Transmission Date: 20220721
  Serious: Yes (Other)
  Sender: FDA-Public Use
  Company Number: JP-SUN PHARMACEUTICAL INDUSTRIES LTD-2022RR-335556

PATIENT
  Age: 72 Year
  Sex: Male

DRUGS (2)
  1. OXALIPLATIN [Suspect]
     Active Substance: OXALIPLATIN
     Indication: Gastric cancer
     Dosage: 130 MILLIGRAM/SQ. METER, 1 DOSE/3 WEEKS, ON DAY 1, 4 CYCLES
     Route: 065
  2. TS-1 [Suspect]
     Active Substance: GIMERACIL\OTERACIL\TEGAFUR
     Indication: Gastric cancer
     Dosage: 40 MILLIGRAM/SQ. METER, BID
     Route: 048

REACTIONS (4)
  - Pseudocirrhosis [Unknown]
  - Abdominal distension [Unknown]
  - Malignant ascites [Recovered/Resolved]
  - Pleural effusion [Unknown]
